FAERS Safety Report 6735984-X (Version None)
Quarter: 2010Q2

REPORT INFORMATION
  Report Type: 
  Country: None (occurrence: None)
  Receive Date: 20100519
  Receipt Date: 20100511
  Transmission Date: 20101027
  Serious: Yes (Hospitalization, Other)
  Sender: FDA-Public Use
  Company Number: 1000013772

PATIENT
  Age: 67 Year
  Sex: Male

DRUGS (20)
  1. SAVELLA [Suspect]
     Indication: MYOFASCIAL PAIN SYNDROME
     Dosage: 50 MG  (25 MG, 2 IN 1 D) ORAL
     Route: 048
     Dates: start: 20100107, end: 20100211
  2. FENTANYL CITRATE [Suspect]
     Indication: MYOFASCIAL PAIN SYNDROME
     Dosage: TRANSDERMAL
     Route: 062
  3. ZOLOFT [Suspect]
     Indication: DEPRESSION
     Dosage: 100 MG (100 MG, 1 IN 1 D) ORAL
     Route: 048
  4. NAMENDA [Concomitant]
  5. MIRALAX [Concomitant]
  6. AMITRIPTYLINE [Concomitant]
  7. PLAVIX (75 MILLIGRAMS, TABLETS) [Concomitant]
  8. LANTUS [Concomitant]
  9. NORVASC [Concomitant]
  10. AVALIDE [Concomitant]
  11. ASPIRIN [Concomitant]
  12. CAUDET [Concomitant]
  13. LEGATRIN [Concomitant]
  14. LEVITRA [Concomitant]
  15. FLEXERIL (10 MILLIGRAM) [Concomitant]
  16. SYMLIN [Concomitant]
  17. PRECOCET [Concomitant]
  18. INDOMETHACIN [Concomitant]
  19. SPIRIVA [Concomitant]
  20. ANTIVERT [Concomitant]

REACTIONS (2)
  - DRUG ABUSE [None]
  - SEROTONIN SYNDROME [None]
